FAERS Safety Report 17822998 (Version 1)
Quarter: 2020Q2

REPORT INFORMATION
  Report Type: Spontaneous
  Country: US (occurrence: US)
  Receive Date: 20200523
  Receipt Date: 20200523
  Transmission Date: 20200714
  Serious: No
  Sender: FDA-Public Use
  Company Number: None

PATIENT
  Age: 50 Year
  Sex: Female
  Weight: 77 kg

DRUGS (11)
  1. BENZONATATE (TESSALON PERLES) CAPSULE 100 MG [Concomitant]
     Dates: start: 20200519
  2. SENNOSIDES-DOCUSATE SODIUM (8.6-50 MG/TAB) (SENNA PLUS) TABLET 2 TABLE [Concomitant]
     Dates: start: 20200521
  3. SIMVASTATIN (ZOCOR) TABLET 40 MG [Concomitant]
     Dates: start: 20200519
  4. ENOXAPARIN (LOVENOX) (CONC: 40 MG/ 0.4 ML) INJECTION 40 MG [Concomitant]
     Dates: start: 20200519
  5. ONDANSETRON (ZOFRAN) (CONC: 2 MG/ML) INJECTION 4 MG [Concomitant]
     Dates: start: 20200519
  6. CEFTRIAXONE (ROCEPHIN) 1,000 MG IN 0.9 % SODIUM CHLORIDE (NS) 50 ML AD [Concomitant]
     Dates: start: 20200521
  7. REMDESIVIR EUA [Suspect]
     Active Substance: REMDESIVIR
     Indication: COVID-19
     Route: 041
     Dates: start: 20200520, end: 20200522
  8. POLYETHYLENE GLYCOL 3350 (MIRALAX) PACKET 17 G [Concomitant]
     Dates: start: 20200521
  9. PROMETHAZINE (PHENERGAN) 6.25 MG IN 0.9 % SODIUM CHLORIDE (NS) 50 ML I [Concomitant]
     Dates: start: 20200520
  10. TRAMADOL (ULTRAM) TABLET 50 MG [Concomitant]
     Dates: start: 20200521
  11. DEXTROMETHORPHAN-GUAIFENESIN (CONC: 10-100 MG/5 ML) (ROBITUSSIN DM) SY [Concomitant]
     Dates: start: 20200520

REACTIONS (3)
  - Hypoaesthesia [None]
  - Pruritus [None]
  - Cough [None]

NARRATIVE: CASE EVENT DATE: 20200522
